FAERS Safety Report 9822144 (Version 1)
Quarter: 2014Q1

REPORT INFORMATION
  Report Type: Spontaneous
  Country: JP (occurrence: JP)
  Receive Date: 20140116
  Receipt Date: 20140116
  Transmission Date: 20141002
  Serious: Yes (Death)
  Sender: FDA-Public Use
  Company Number: JP-PFIZER INC-2014014254

PATIENT
  Age: 76 Year
  Sex: Male

DRUGS (1)
  1. SOLU-MEDROL [Suspect]
     Dosage: UNK
     Dates: start: 200802, end: 200802

REACTIONS (1)
  - Pneumocystis jirovecii pneumonia [Fatal]
